FAERS Safety Report 5357228-6 (Version None)
Quarter: 2007Q2

REPORT INFORMATION
  Report Type: 
  Country: None (occurrence: None)
  Receive Date: 20070614
  Receipt Date: 20070606
  Transmission Date: 20071010
  Serious: Yes (Hospitalization, Other)
  Sender: FDA-Public Use
  Company Number: DE-JNJFOC-20070504124

PATIENT
  Age: 38 Year
  Sex: Male

DRUGS (5)
  1. TAVANIC [Suspect]
     Indication: EAR INFECTION
     Route: 048
  2. TAVANIC [Suspect]
     Indication: COUGH
     Route: 048
  3. KLACID [Suspect]
     Indication: EAR INFECTION
     Route: 048
  4. KLACID [Suspect]
     Indication: COUGH
     Route: 048
  5. DIMETINDENE MALEATE [Concomitant]
     Route: 065

REACTIONS (8)
  - ARTHRALGIA [None]
  - BILE DUCT STENOSIS [None]
  - DUODENITIS [None]
  - GASTRITIS [None]
  - GRANULOMA [None]
  - KERATITIS [None]
  - LIVER DISORDER [None]
  - OESOPHAGITIS [None]
